FAERS Safety Report 12654495 (Version 43)
Quarter: 2020Q1

REPORT INFORMATION
  Report Type: Report from Study
  Country: CO (occurrence: CO)
  Receive Date: 20160816
  Receipt Date: 20200324
  Transmission Date: 20200409
  Serious: Yes (Life-Threatening, Hospitalization, Disabling, Other)
  Sender: FDA-Public Use
  Company Number: PHHY2016CO111394

PATIENT
  Age: 48 Year
  Sex: Female
  Weight: 74 kg

DRUGS (15)
  1. REVOLADE [Suspect]
     Active Substance: ELTROMBOPAG
     Indication: IMMUNE THROMBOCYTOPENIC PURPURA
     Dosage: 25 MG, TID
     Route: 048
     Dates: start: 20160615, end: 20161220
  2. REVOLADE [Suspect]
     Active Substance: ELTROMBOPAG
     Dosage: 1 DF, BID
     Route: 048
     Dates: start: 20170130
  3. REVOLADE [Suspect]
     Active Substance: ELTROMBOPAG
     Dosage: 2 DF, QD (2 TABLETS OF 25MG DAILY FOR 15 DAYS)
     Route: 048
  4. REVOLADE [Suspect]
     Active Substance: ELTROMBOPAG
     Dosage: 25 MG, Q12H
     Route: 048
  5. REVOLADE [Suspect]
     Active Substance: ELTROMBOPAG
     Dosage: 25 MG, TID
     Route: 048
     Dates: start: 20170412
  6. THIAMINE. [Concomitant]
     Active Substance: THIAMINE
     Indication: IMMUNE THROMBOCYTOPENIC PURPURA
     Dosage: 25 MG, QD
     Route: 048
  7. REVOLADE [Suspect]
     Active Substance: ELTROMBOPAG
     Dosage: 75 MG, QD
     Route: 048
     Dates: start: 20160715
  8. REVOLADE [Suspect]
     Active Substance: ELTROMBOPAG
     Dosage: 75 MG, QD (STARTED 4 MONTHS AGO, STOPPED 2 MONTHS AGO)
     Route: 048
  9. MIGRANOL [Concomitant]
     Indication: PRODUCT USED FOR UNKNOWN INDICATION
     Route: 065
  10. CALCIUM [Concomitant]
     Active Substance: CALCIUM
     Indication: PRODUCT USED FOR UNKNOWN INDICATION
     Dosage: UNK
     Route: 065
  11. REVOLADE [Suspect]
     Active Substance: ELTROMBOPAG
     Dosage: 75 MG, QD
     Route: 048
  12. PREDNISOLONE. [Suspect]
     Active Substance: PREDNISOLONE
     Indication: THROMBOCYTOPENIC PURPURA
     Dosage: 50 MG, QD
     Route: 048
  13. REVOLADE [Suspect]
     Active Substance: ELTROMBOPAG
     Dosage: 75 MG, QD
     Route: 048
     Dates: start: 20160717, end: 20180726
  14. REVOLADE [Suspect]
     Active Substance: ELTROMBOPAG
     Dosage: 25 MG, TID
     Route: 048
  15. REVOLADE [Suspect]
     Active Substance: ELTROMBOPAG
     Dosage: 75 MG, QD
     Route: 048

REACTIONS (70)
  - Breast discharge [Not Recovered/Not Resolved]
  - Depressed mood [Not Recovered/Not Resolved]
  - Pneumonia [Unknown]
  - Throat cancer [Unknown]
  - Intervertebral disc protrusion [Unknown]
  - Blister [Unknown]
  - Swelling [Unknown]
  - Effusion [Unknown]
  - Malaise [Not Recovered/Not Resolved]
  - Paraesthesia [Unknown]
  - Vomiting [Unknown]
  - Inflammation [Unknown]
  - Incorrect route of product administration [Unknown]
  - Gait disturbance [Unknown]
  - Gingival pain [Unknown]
  - Contusion [Not Recovered/Not Resolved]
  - Arthralgia [Not Recovered/Not Resolved]
  - Immune system disorder [Unknown]
  - Inflammation [Recovered/Resolved]
  - Limb discomfort [Unknown]
  - Asthenia [Unknown]
  - Diarrhoea [Unknown]
  - Syncope [Unknown]
  - Pain in extremity [Unknown]
  - Post procedural haemorrhage [Unknown]
  - Skin discolouration [Unknown]
  - Platelet count abnormal [Unknown]
  - Neck pain [Unknown]
  - Muscular weakness [Unknown]
  - Oropharyngeal pain [Unknown]
  - Head discomfort [Unknown]
  - Cardiovascular disorder [Unknown]
  - Headache [Unknown]
  - Bronchitis [Unknown]
  - Breast disorder female [Unknown]
  - Haemorrhage [Unknown]
  - Balance disorder [Unknown]
  - Hypoaesthesia [Not Recovered/Not Resolved]
  - Joint swelling [Unknown]
  - Dehydration [Unknown]
  - Epistaxis [Unknown]
  - Platelet count decreased [Not Recovered/Not Resolved]
  - Migraine [Unknown]
  - Abdominal pain upper [Unknown]
  - Influenza [Unknown]
  - Somnolence [Unknown]
  - Osteoarthritis [Unknown]
  - Vulvovaginal pruritus [Unknown]
  - Pruritus [Unknown]
  - Thyroid mass [Unknown]
  - Nerve degeneration [Unknown]
  - Pain [Unknown]
  - Haemoglobin decreased [Unknown]
  - Hyperhidrosis [Unknown]
  - Bone pain [Unknown]
  - Alopecia [Unknown]
  - Swelling face [Not Recovered/Not Resolved]
  - Spinal pain [Unknown]
  - Peripheral swelling [Unknown]
  - Vaginal haemorrhage [Recovered/Resolved]
  - Breast haematoma [Unknown]
  - Breast pain [Unknown]
  - Feeling of despair [Unknown]
  - Condition aggravated [Unknown]
  - Vulvovaginal burning sensation [Unknown]
  - Fatigue [Unknown]
  - Sepsis [Unknown]
  - Haematoma [Unknown]
  - Insomnia [Unknown]
  - Decreased immune responsiveness [Unknown]

NARRATIVE: CASE EVENT DATE: 20170519
